FAERS Safety Report 5767258-8 (Version None)
Quarter: 2008Q2

REPORT INFORMATION
  Report Type: 
  Country: None (occurrence: None)
  Receive Date: 20080611
  Receipt Date: 20080611
  Transmission Date: 20081010
  Serious: Yes (Death)
  Sender: FDA-Public Use
  Company Number: None

PATIENT
  Sex: Female
  Weight: 100 kg

DRUGS (9)
  1. COUMADIN [Suspect]
     Indication: HIP ARTHROPLASTY
     Dosage: PO
     Route: 048
     Dates: start: 20080115, end: 20080124
  2. CALCITONIN [Concomitant]
  3. SIMVASTATIN [Concomitant]
  4. LEVOPHED [Concomitant]
  5. ALBUTEROL [Concomitant]
  6. TYLENOL [Concomitant]
  7. HYDROCODONE [Concomitant]
  8. LORAZEPAM [Concomitant]
  9. CALCIUM CARBONATE [Concomitant]

REACTIONS (5)
  - GASTRITIS [None]
  - HEART RATE INCREASED [None]
  - HYPOTENSION [None]
  - ULCER [None]
  - UPPER GASTROINTESTINAL HAEMORRHAGE [None]
